FAERS Safety Report 7250583-1 (Version None)
Quarter: 2011Q1

REPORT INFORMATION
  Report Type: 
  Country: None (occurrence: None)
  Receive Date: 20110128
  Receipt Date: 20110120
  Transmission Date: 20110831
  Serious: Yes (Hospitalization, Other)
  Sender: FDA-Public Use
  Company Number: SG-JNJFOC-20110105784

PATIENT
  Age: 29 Year
  Sex: Female

DRUGS (1)
  1. RISPERIDONE [Suspect]
     Indication: SCHIZOPHRENIA, PARANOID TYPE
     Route: 048

REACTIONS (7)
  - PERSECUTORY DELUSION [None]
  - HALLUCINATION, VISUAL [None]
  - HYPERPROLACTINAEMIA [None]
  - PITUITARY TUMOUR BENIGN [None]
  - DISTURBANCE IN ATTENTION [None]
  - PSYCHOTIC DISORDER [None]
  - MEMORY IMPAIRMENT [None]
